FAERS Safety Report 5389776-7 (Version None)
Quarter: 2007Q3

REPORT INFORMATION
  Report Type: 
  Country: None (occurrence: None)
  Receive Date: 20070717
  Receipt Date: 20070711
  Transmission Date: 20080115
  Serious: Yes (Hospitalization, Other)
  Sender: FDA-Public Use
  Company Number: JP-MERCK-0706USA00269

PATIENT
  Age: 62 Year
  Sex: Male
  Weight: 87 kg

DRUGS (5)
  1. HYZAAR [Suspect]
     Indication: HYPERTENSION
     Route: 048
     Dates: start: 20061130, end: 20070526
  2. ASPIRIN [Concomitant]
     Indication: CEREBRAL INFARCTION
     Route: 048
     Dates: start: 20061130, end: 20070526
  3. CARDENALIN [Concomitant]
     Indication: HYPERTENSION
     Route: 048
     Dates: start: 20061130, end: 20070526
  4. ATELEC [Suspect]
     Indication: HYPERTENSION
     Route: 048
     Dates: start: 20061130, end: 20070526
  5. [THERAPY UNSPECIFIED] [Concomitant]
     Indication: AGITATION
     Route: 048
     Dates: start: 20061130, end: 20070526

REACTIONS (3)
  - HYPERGLYCAEMIA [None]
  - MALAISE [None]
  - RENAL DISORDER [None]
